FAERS Safety Report 13021064 (Version 2)
Quarter: 2016Q4

REPORT INFORMATION
  Report Type: Report from Study
  Country: US (occurrence: US)
  Receive Date: 20161213
  Receipt Date: 20161220
  Transmission Date: 20170207
  Serious: Yes (Other)
  Sender: FDA-Public Use
  Company Number: US-ROCHE-1866124

PATIENT
  Sex: Male
  Weight: 74.91 kg

DRUGS (3)
  1. LUCENTIS [Suspect]
     Active Substance: RANIBIZUMAB
     Indication: NEOVASCULAR AGE-RELATED MACULAR DEGENERATION
     Dosage: UNKNOWN ;ONGOING: UNKNOWN
     Route: 065
  2. LUCENTIS [Suspect]
     Active Substance: RANIBIZUMAB
     Indication: CHOROIDAL NEOVASCULARISATION
     Dosage: INJECTION EVERY 28 DAYS; ONGOING: YES
     Route: 065
  3. AVASTIN [Suspect]
     Active Substance: BEVACIZUMAB
     Indication: NEOVASCULAR AGE-RELATED MACULAR DEGENERATION
     Route: 065

REACTIONS (4)
  - Visual acuity reduced [Not Recovered/Not Resolved]
  - Eye disorder [Unknown]
  - Off label use [Unknown]
  - Hernia [Unknown]
